FAERS Safety Report 26195922 (Version 1)
Quarter: 2025Q4

REPORT INFORMATION
  Report Type: Spontaneous
  Country: JP (occurrence: JP)
  Receive Date: 20251224
  Receipt Date: 20251224
  Transmission Date: 20260118
  Serious: Yes (Death)
  Sender: MERCK SHARP & DOHME LLC
  Company Number: JP-009507513-2336741

PATIENT
  Age: 8 Decade
  Sex: Male

DRUGS (3)
  1. KEYTRUDA [Suspect]
     Active Substance: PEMBROLIZUMAB
     Indication: Bile duct cancer
     Dosage: 200MG, ONCE EVERY 3 WEEKS
     Route: 041
     Dates: start: 202502
  2. GEMCITABINE [Suspect]
     Active Substance: GEMCITABINE
     Indication: Bile duct cancer
     Dosage: 1000MG/M2, ONCE EVERY 3 WEEKS (DAY1,8)
     Route: 041
     Dates: start: 202502
  3. CISPLATIN [Suspect]
     Active Substance: CISPLATIN
     Indication: Bile duct cancer
     Dosage: 20MG/M2, ONCE EVERY 3 WEEKS (DAY1,8)
     Route: 041
     Dates: start: 202502

REACTIONS (2)
  - Malignant neoplasm progression [Fatal]
  - Therapeutic product effect incomplete [Unknown]

NARRATIVE: CASE EVENT DATE: 20250801
